FAERS Safety Report 4618643-9 (Version None)
Quarter: 2005Q1

REPORT INFORMATION
  Report Type: 
  Country: None (occurrence: None)
  Receive Date: 20050323
  Receipt Date: 20050302
  Transmission Date: 20050727
  Serious: Yes (Other)
  Sender: FDA-Public Use
  Company Number: US_0502112220

PATIENT
  Age: 45 Year
  Sex: Female
  Weight: 66 kg

DRUGS (18)
  1. EVISTA [Suspect]
     Indication: OSTEOPENIA
     Dosage: 60 MG/1 DAY
     Dates: start: 20041122
  2. ZYPREXA [Suspect]
     Dosage: 10 MG/1 DAY
     Dates: start: 20021001, end: 20040601
  3. SYMBYAX [Suspect]
  4. SEROQUEL [Concomitant]
  5. LITHIIUM [Concomitant]
  6. ZOLOFT [Concomitant]
  7. CALCIUM CITRATE WITH VITAMIN D [Concomitant]
  8. ACETAMINOPHEN AND CODEINE NO. 3 [Concomitant]
  9. PHENERGAN [Concomitant]
  10. ALBUTEROL [Concomitant]
  11. IBUPROFEN [Concomitant]
  12. STARLIX [Concomitant]
  13. SINGULAIR (MONTELUKAST) [Concomitant]
  14. LAMICTAL [Concomitant]
  15. CELEBREX [Concomitant]
  16. FLUTICASONE PROPIONATE [Concomitant]
  17. SALMETEROL [Concomitant]
  18. TRIHEXYPHENIDYL HCL [Concomitant]

REACTIONS (8)
  - COUGH [None]
  - DIABETES MELLITUS INADEQUATE CONTROL [None]
  - DYSPNOEA [None]
  - FATIGUE [None]
  - HEADACHE [None]
  - OSTEOPENIA [None]
  - SYNCOPE [None]
  - WHEEZING [None]
